FAERS Safety Report 5024876-2 (Version None)
Quarter: 2006Q2

REPORT INFORMATION
  Report Type: 
  Country: None (occurrence: None)
  Receive Date: 20060607
  Receipt Date: 20060524
  Transmission Date: 20061013
  Serious: Yes (Hospitalization)
  Sender: FDA-Public Use
  Company Number: 2006PV014395

PATIENT
  Age: 57 Year
  Sex: Male
  Weight: 95.2554 kg

DRUGS (3)
  1. BYETTA [Suspect]
     Indication: DIABETES MELLITUS NON-INSULIN-DEPENDENT
     Dosage: SEE IMAGE
     Route: 058
     Dates: start: 20051001, end: 20051101
  2. BYETTA [Suspect]
     Indication: DIABETES MELLITUS NON-INSULIN-DEPENDENT
     Dosage: SEE IMAGE
     Route: 058
     Dates: start: 20051101
  3. GLYBURIDE [Concomitant]

REACTIONS (8)
  - ABDOMINAL DISTENSION [None]
  - EARLY SATIETY [None]
  - FATIGUE [None]
  - HEART RATE INCREASED [None]
  - HOT FLUSH [None]
  - ORAL INTAKE REDUCED [None]
  - VIRAL INFECTION [None]
  - WEIGHT DECREASED [None]
